FAERS Safety Report 5590908-6 (Version None)
Quarter: 2008Q1

REPORT INFORMATION
  Report Type: 
  Country: None (occurrence: None)
  Receive Date: 20080115
  Receipt Date: 20080103
  Transmission Date: 20080703
  Serious: Yes (Other)
  Sender: FDA-Public Use
  Company Number: US-BAYER-200715809NA

PATIENT
  Age: 29 Year
  Sex: Female

DRUGS (2)
  1. MIRENA [Suspect]
     Indication: CONTRACEPTION
     Route: 015
     Dates: start: 20070329, end: 20071005
  2. MIRENA [Suspect]
     Route: 015
     Dates: start: 20071030

REACTIONS (4)
  - ABDOMINAL PAIN [None]
  - CERVICAL DYSPLASIA [None]
  - CERVICITIS HUMAN PAPILLOMA VIRUS [None]
  - IUD MIGRATION [None]
